FAERS Safety Report 6812152-4 (Version None)
Quarter: 2010Q3

REPORT INFORMATION
  Report Type: 
  Country: None (occurrence: None)
  Receive Date: 20100701
  Receipt Date: 20100122
  Transmission Date: 20110219
  Serious: No
  Sender: FDA-Public Use
  Company Number: US-ABBOTT-10P-163-0622579-00

PATIENT
  Sex: Female

DRUGS (2)
  1. RITONAVIR [Suspect]
     Indication: HIV INFECTION
     Dates: start: 20091101
  2. REYATAZ [Suspect]
     Indication: PRODUCT USED FOR UNKNOWN INDICATION
     Dates: start: 20091101

REACTIONS (1)
  - ADVERSE DRUG REACTION [None]
